FAERS Safety Report 10705019 (Version 2)
Quarter: 2015Q1

REPORT INFORMATION
  Report Type: Report from Study
  Country: BR (occurrence: BR)
  Receive Date: 20150112
  Receipt Date: 20150127
  Transmission Date: 20150721
  Serious: Yes (Hospitalization)
  Sender: FDA-Public Use
  Company Number: PHHY2015BR002536

PATIENT
  Sex: Male
  Weight: 72 kg

DRUGS (5)
  1. CREON [Concomitant]
     Active Substance: PANCRELIPASE AMYLASE\PANCRELIPASE LIPASE\PANCRELIPASE PROTEASE
     Indication: PANCREATIC ENZYME ABNORMALITY
     Dosage: 12 DF (25000 IU), QD
     Route: 048
     Dates: start: 2010
  2. TOBRAMYCIN. [Suspect]
     Active Substance: TOBRAMYCIN
     Indication: CYSTIC FIBROSIS
     Dosage: 2 DF (AMPOULES), QD
     Route: 055
     Dates: end: 201412
  3. OMEPRAZOLE. [Concomitant]
     Active Substance: OMEPRAZOLE
     Indication: GASTROINTESTINAL DISORDER
     Dosage: 1 DF (40 MG), QD
     Route: 048
     Dates: start: 2002
  4. ZOTEON [Suspect]
     Active Substance: TOBRAMYCIN
     Indication: CYSTIC FIBROSIS
     Dosage: 8 DF (CAPSULES), QD
     Route: 055
     Dates: start: 201408, end: 201412
  5. DORNASE ALFA [Concomitant]
     Active Substance: DORNASE ALFA
     Indication: PRODUCT USED FOR UNKNOWN INDICATION
     Dosage: 1 DF (2.5 MG), QD
     Route: 055
     Dates: start: 2005

REACTIONS (5)
  - Total lung capacity decreased [Unknown]
  - General physical condition abnormal [Unknown]
  - Underweight [Recovering/Resolving]
  - Asthenia [Recovering/Resolving]
  - Secretion discharge [Unknown]
